FAERS Safety Report 9377157 (Version 1)
Quarter: 2013Q3

REPORT INFORMATION
  Report Type: Spontaneous
  Country: FR (occurrence: FR)
  Receive Date: 20130701
  Receipt Date: 20130701
  Transmission Date: 20140515
  Serious: Yes (Hospitalization)
  Sender: FDA-Public Use
  Company Number: FR-NOVOPROD-381422

PATIENT
  Age: 65 Year
  Sex: Male
  Weight: 80 kg

DRUGS (1)
  1. NOVONORM [Suspect]
     Indication: DIABETES MELLITUS
     Dosage: 14 MG, QD
     Route: 048
     Dates: start: 201212, end: 201303

REACTIONS (3)
  - Fall [Recovered/Resolved]
  - Hypoglycaemia [Recovered/Resolved]
  - Overdose [Unknown]
